FAERS Safety Report 24376162 (Version 1)
Quarter: 2024Q3

REPORT INFORMATION
  Report Type: Spontaneous
  Country: US (occurrence: None)
  Receive Date: 20240926
  Receipt Date: 20240926
  Transmission Date: 20241016
  Serious: Yes (Hospitalization)
  Sender: Public
  Company Number: None

PATIENT
  Age: 78 Year
  Sex: Male

DRUGS (1)
  1. ATORVASTATIN CALCIUM [Suspect]
     Active Substance: ATORVASTATIN CALCIUM
     Indication: Hyperlipidaemia
     Dosage: FREQUENCY : DAILY;?
     Route: 048
     Dates: end: 20230520

REACTIONS (8)
  - Arthralgia [None]
  - Myalgia [None]
  - Renal disorder [None]
  - Rhabdomyolysis [None]
  - Therapy interrupted [None]
  - Acute kidney injury [None]
  - Renal tubular necrosis [None]
  - Myoglobinuria [None]

NARRATIVE: CASE EVENT DATE: 20230520
